FAERS Safety Report 21723665 (Version 1)
Quarter: 2022Q4

REPORT INFORMATION
  Report Type: Spontaneous
  Country: IT (occurrence: IT)
  Receive Date: 20221213
  Receipt Date: 20221213
  Transmission Date: 20230113
  Serious: Yes (Other)
  Sender: FDA-Public Use
  Company Number: IT-PFIZER INC-PV202200118410

PATIENT
  Age: 71 Year
  Sex: Male

DRUGS (6)
  1. AXITINIB [Suspect]
     Active Substance: AXITINIB
     Indication: Metastatic renal cell carcinoma
     Dosage: 5 MG BID
     Dates: start: 202102, end: 202110
  2. AXITINIB [Suspect]
     Active Substance: AXITINIB
     Dosage: 3 MG BID
     Dates: start: 202102, end: 202110
  3. DEXAMETHASONE SODIUM PHOSPHATE [Suspect]
     Active Substance: DEXAMETHASONE SODIUM PHOSPHATE
     Indication: Adrenal insufficiency
     Dosage: 8 MG DAILY
  4. PEMBROLIZUMAB [Suspect]
     Active Substance: PEMBROLIZUMAB
     Indication: Metastatic renal cell carcinoma
     Dosage: 200 MG Q21
     Dates: start: 202102
  5. CORTISONE ACETATE [Suspect]
     Active Substance: CORTISONE ACETATE
     Indication: Hypophysitis
     Dosage: 37.5 MG DAILY
     Dates: start: 202109
  6. CORTISONE ACETATE [Suspect]
     Active Substance: CORTISONE ACETATE
     Indication: Adrenal insufficiency
     Dosage: 25 MG DAILY

REACTIONS (6)
  - Adrenal insufficiency [Recovered/Resolved]
  - Hypophysitis [Recovered/Resolved]
  - Thyroiditis [Unknown]
  - Palmar-plantar erythrodysaesthesia syndrome [Recovered/Resolved]
  - Asthenia [Recovered/Resolved]
  - Empty sella syndrome [Unknown]

NARRATIVE: CASE EVENT DATE: 20210901
